FAERS Safety Report 17996299 (Version 5)
Quarter: 2020Q4

REPORT INFORMATION
  Report Type: Spontaneous
  Country: IL (occurrence: IL)
  Receive Date: 20200708
  Receipt Date: 20201005
  Transmission Date: 20210113
  Serious: Yes (Other)
  Sender: FDA-Public Use
  Company Number: IL-SA-2020SA174601

PATIENT

DRUGS (3)
  1. DUPIXENT [Suspect]
     Active Substance: DUPILUMAB
     Indication: DERMATITIS ATOPIC
     Dosage: 300 MG, QOW
  2. DUPIXENT [Suspect]
     Active Substance: DUPILUMAB
     Dosage: 300 MG, QOW
     Dates: end: 202007
  3. DUPIXENT [Suspect]
     Active Substance: DUPILUMAB
     Indication: ASTHMA
     Dosage: 600 MG, 1X
     Dates: start: 201804, end: 201804

REACTIONS (4)
  - CD4 lymphocytes abnormal [Unknown]
  - Peripheral T-cell lymphoma unspecified [Unknown]
  - Rebound atopic dermatitis [Unknown]
  - Skin lesion [Unknown]

NARRATIVE: CASE EVENT DATE: 201909
